FAERS Safety Report 7385148-4 (Version None)
Quarter: 2011Q1

REPORT INFORMATION
  Report Type: 
  Country: None (occurrence: None)
  Receive Date: 20110330
  Receipt Date: 20110325
  Transmission Date: 20110831
  Serious: Yes (Other)
  Sender: FDA-Public Use
  Company Number: US-PFIZER INC-2011041457

PATIENT
  Sex: Male

DRUGS (6)
  1. SIMVASTATIN [Concomitant]
     Dosage: UNK
  2. LISINOPRIL [Concomitant]
     Dosage: UNK
  3. GEODON [Suspect]
     Indication: THINKING ABNORMAL
     Dosage: 40 MG, 2X/DAY
     Route: 048
     Dates: start: 20110222
  4. WELLBUTRIN XL [Concomitant]
     Dosage: UNK
     Dates: start: 20080101
  5. GEODON [Suspect]
     Indication: ANTIDEPRESSANT THERAPY
     Dosage: 40 MG, 3X/DAY
     Route: 048
     Dates: start: 20091109
  6. GEODON [Suspect]
     Dosage: 40 MG, 1X/DAY
     Route: 048

REACTIONS (9)
  - VOMITING [None]
  - DIZZINESS [None]
  - WITHDRAWAL SYNDROME [None]
  - IMPAIRED WORK ABILITY [None]
  - NAUSEA [None]
  - HEART RATE INCREASED [None]
  - ERECTILE DYSFUNCTION [None]
  - INSOMNIA [None]
  - PALPITATIONS [None]
